FAERS Safety Report 19197740 (Version 6)
Quarter: 2022Q2

REPORT INFORMATION
  Report Type: Report from Study
  Country: CA (occurrence: CA)
  Receive Date: 20210429
  Receipt Date: 20220505
  Transmission Date: 20220721
  Serious: No
  Sender: FDA-Public Use
  Company Number: CA-OTSUKA-2021_013926

PATIENT
  Sex: Male

DRUGS (1)
  1. CEDAZURIDINE\DECITABINE [Suspect]
     Active Substance: CEDAZURIDINE\DECITABINE
     Indication: Myelodysplastic syndrome
     Dosage: (35-100 MG), QD (DAYS 1-5 OF EVERY 28 DAYS)
     Route: 048
     Dates: start: 20210222

REACTIONS (1)
  - No adverse event [Unknown]
